FAERS Safety Report 7202447-7 (Version None)
Quarter: 2010Q4

REPORT INFORMATION
  Report Type: 
  Country: None (occurrence: None)
  Receive Date: 20101229
  Receipt Date: 20101222
  Transmission Date: 20110411
  Serious: Yes (Hospitalization)
  Sender: FDA-Public Use
  Company Number: A0901719A

PATIENT
  Age: 52 Year
  Sex: Male
  Weight: 86.4 kg

DRUGS (3)
  1. FLOLAN [Suspect]
     Indication: PULMONARY ARTERIAL HYPERTENSION
     Dosage: 21.9NGKM UNKNOWN
     Route: 065
     Dates: start: 20090202
  2. WARFARIN [Concomitant]
     Indication: PRODUCT USED FOR UNKNOWN INDICATION
     Route: 065
  3. ASPIRIN [Concomitant]
     Indication: PRODUCT USED FOR UNKNOWN INDICATION
     Route: 065

REACTIONS (3)
  - COLONOSCOPY [None]
  - GASTROINTESTINAL HAEMORRHAGE [None]
  - POLYPECTOMY [None]
